FAERS Safety Report 10163617 (Version 2)
Quarter: 2014Q2

REPORT INFORMATION
  Report Type: Spontaneous
  Country: PH (occurrence: PH)
  Receive Date: 20140509
  Receipt Date: 20140509
  Transmission Date: 20141212
  Serious: Yes (Hospitalization, Other)
  Sender: FDA-Public Use
  Company Number: PH-PFIZER INC-2014072458

PATIENT
  Age: 41 Year
  Sex: Male

DRUGS (1)
  1. ZITHROMAX [Suspect]
     Indication: UPPER RESPIRATORY TRACT INFECTION
     Dosage: 500 MG, 1X/DAY
     Dates: start: 20131110, end: 20131112

REACTIONS (3)
  - Jaundice cholestatic [Unknown]
  - Liver injury [Unknown]
  - Haemorrhage [Unknown]
